FAERS Safety Report 8030046-6 (Version None)
Quarter: 2011Q4

REPORT INFORMATION
  Report Type: 
  Country: None (occurrence: None)
  Receive Date: 20111130
  Receipt Date: 20110706
  Transmission Date: 20120403
  Serious: Yes (Hospitalization)
  Sender: FDA-Public Use
  Company Number: US201107001469

PATIENT
  Sex: Female

DRUGS (1)
  1. BYETTA [Suspect]
     Indication: PRODUCT USED FOR UNKNOWN INDICATION
     Dosage: 5 UG,SUBCUTANEOUS, 10 UG, BID, SUBCUTANEOUS  ,5UG, BID, SUBCUTANEOUS
     Route: 058

REACTIONS (1)
  - DIARRHOEA [None]
